FAERS Safety Report 15184078 (Version 4)
Quarter: 2020Q4

REPORT INFORMATION
  Report Type: Spontaneous
  Country: US (occurrence: US)
  Receive Date: 20180723
  Receipt Date: 20201126
  Transmission Date: 20210113
  Serious: No
  Sender: FDA-Public Use
  Company Number: US-PFIZER INC-2018293793

PATIENT
  Age: 65 Year
  Sex: Female
  Weight: 53.52 kg

DRUGS (9)
  1. GABAPENTIN. [Concomitant]
     Active Substance: GABAPENTIN
     Indication: NERVE INJURY
     Dosage: 200 MG, 1X/DAY (TAKES 2 CAPSULES A NIGHT BEFORE BED)
     Dates: start: 2013
  2. GABAPENTIN. [Concomitant]
     Active Substance: GABAPENTIN
     Indication: SCOLIOSIS
  3. OXYCODONE [Concomitant]
     Active Substance: OXYCODONE
     Indication: PAIN
     Dosage: 15 MG, AS NEEDED (4 TIMES A DAY AS NEEDED)
     Dates: start: 2016
  4. LISINOPRIL/HCTZ [Concomitant]
     Active Substance: HYDROCHLOROTHIAZIDE\LISINOPRIL
     Indication: SWELLING
  5. VALIUM [Concomitant]
     Active Substance: DIAZEPAM
     Indication: SLEEP DISORDER
     Dosage: UNK, UNK (EITHER 1 TABLET OR A HALF TABLET - 2 MG TABLET AT NIGHT)
     Dates: start: 2013
  6. LISINOPRIL/HCTZ [Concomitant]
     Active Substance: HYDROCHLOROTHIAZIDE\LISINOPRIL
     Indication: BLOOD PRESSURE ABNORMAL
     Dosage: UNK, 1X/DAY (HYDROCHLOROTHIAZIDE: 20 MG, LISINOPRIL: 12.5 MG]
     Dates: start: 201802
  7. XELJANZ [Suspect]
     Active Substance: TOFACITINIB CITRATE
     Dosage: 5 MG, 2X/DAY
     Dates: start: 201807
  8. METHYLPREDNISOLONE. [Concomitant]
     Active Substance: METHYLPREDNISOLONE
     Indication: ARTHRITIS
     Dosage: 4 MG, AS NEEDED (ONCE A DAY IN THE MORNING)
     Dates: start: 201712
  9. XELJANZ [Suspect]
     Active Substance: TOFACITINIB CITRATE
     Indication: RHEUMATOID ARTHRITIS
     Dosage: 5 MG, 1X/DAY
     Dates: start: 2018

REACTIONS (4)
  - Memory impairment [Unknown]
  - Hypersensitivity [Unknown]
  - Body height decreased [Unknown]
  - Feeling abnormal [Unknown]
